FAERS Safety Report 7763932-2 (Version None)
Quarter: 2011Q3

REPORT INFORMATION
  Report Type: 
  Country: None (occurrence: None)
  Receive Date: 20110921
  Receipt Date: 20110906
  Transmission Date: 20111222
  Serious: Yes (Disabling)
  Sender: FDA-Public Use
  Company Number: FR-ACTELION-A-CH2011-53740

PATIENT
  Age: 2 Year

DRUGS (1)
  1. ZAVESCA [Suspect]
     Indication: NIEMANN-PICK DISEASE
     Dosage: UNK
     Route: 048
     Dates: end: 20110501

REACTIONS (3)
  - NIEMANN-PICK DISEASE [None]
  - DISEASE PROGRESSION [None]
  - BEDRIDDEN [None]
